FAERS Safety Report 5898043-4 (Version None)
Quarter: 2008Q3

REPORT INFORMATION
  Report Type: 
  Country: None (occurrence: None)
  Receive Date: 20080925
  Receipt Date: 20080407
  Transmission Date: 20090109
  Serious: Yes (Hospitalization)
  Sender: FDA-Public Use
  Company Number: FR-ROCHE-540629

PATIENT
  Sex: Male

DRUGS (4)
  1. RIVOTRIL [Suspect]
     Indication: AGITATION
     Route: 048
  2. MADOPAR [Concomitant]
     Indication: PARKINSON'S DISEASE
     Dosage: STRENGTH REPORTED: 62.5 MG
     Route: 048
  3. MADOPAR [Concomitant]
     Dosage: STRENGTH REPORTED: 125 MG
     Route: 048
  4. XATRAL [Suspect]
     Indication: PROSTATIC DISORDER
     Route: 048
     Dates: start: 20071001, end: 20071021

REACTIONS (3)
  - HYPERTENSION [None]
  - LOSS OF CONSCIOUSNESS [None]
  - MALAISE [None]
